FAERS Safety Report 9606970 (Version 1)
Quarter: 2013Q4

REPORT INFORMATION
  Report Type: Spontaneous
  Country: IT (occurrence: IT)
  Receive Date: 20131008
  Receipt Date: 20131008
  Transmission Date: 20140711
  Serious: Yes (Other)
  Sender: FDA-Public Use
  Company Number: IT-ROCHE-1285506

PATIENT
  Sex: Female

DRUGS (2)
  1. OMALIZUMAB [Suspect]
     Indication: ASTHMA
     Route: 065
  2. FENOTEROL [Concomitant]
     Dosage: 200 IG
     Route: 065

REACTIONS (3)
  - Asthma [Unknown]
  - Premature labour [Unknown]
  - Maternal exposure during pregnancy [Unknown]
